FAERS Safety Report 4978809-5 (Version None)
Quarter: 2006Q2

REPORT INFORMATION
  Report Type: 
  Country: None (occurrence: None)
  Receive Date: 20060417
  Receipt Date: 20060329
  Transmission Date: 20061013
  Serious: Yes (Hospitalization)
  Sender: FDA-Public Use
  Company Number: 190001L06JPN

PATIENT
  Age: 31 Year
  Sex: Female

DRUGS (2)
  1. MENOTROPHIN             (MENOTROPHIN) [Suspect]
     Indication: OVULATION INDUCTION
     Dates: start: 20041026
  2. CHORIONIC GONADOTROPIN [Suspect]
     Indication: OVULATION INDUCTION

REACTIONS (10)
  - ABORTION INDUCED [None]
  - ASCITES [None]
  - HETEROTOPIC PREGNANCY [None]
  - INTESTINAL HAEMORRHAGE [None]
  - INTRA-UTERINE DEATH [None]
  - OVARIAN ENLARGEMENT [None]
  - OVARIAN HYPERSTIMULATION SYNDROME [None]
  - PERITONEAL HAEMORRHAGE [None]
  - PLEURAL EFFUSION [None]
  - TWIN PREGNANCY [None]
